FAERS Safety Report 21620692 (Version 1)
Quarter: 2022Q4

REPORT INFORMATION
  Report Type: Spontaneous
  Country: US (occurrence: None)
  Receive Date: 20221118
  Receipt Date: 20221118
  Transmission Date: 20230112
  Serious: Yes (Hospitalization)
  Sender: FDA-Public Use
  Company Number: None

PATIENT
  Sex: Male
  Weight: 132 kg

DRUGS (6)
  1. CYCLOPHOSPHAMIDE [Suspect]
     Active Substance: CYCLOPHOSPHAMIDE
     Dates: end: 20221102
  2. CYTARABINE [Suspect]
     Active Substance: CYTARABINE
     Dates: end: 20221111
  3. SPRYCEL [Suspect]
     Active Substance: DASATINIB
     Dates: end: 20221111
  4. DEXAMETHASONE [Suspect]
     Active Substance: DEXAMETHASONE
     Dates: end: 20221111
  5. LASIX [Concomitant]
     Active Substance: FUROSEMIDE
  6. SODIUM CHLORIDE [Concomitant]

REACTIONS (8)
  - Left ventricular dysfunction [None]
  - Pneumonia [None]
  - Acute pulmonary oedema [None]
  - Left ventricular failure [None]
  - Myocardial ischaemia [None]
  - Electrocardiogram T wave abnormal [None]
  - Chemotherapy cardiotoxicity attenuation [None]
  - Anaemia [None]

NARRATIVE: CASE EVENT DATE: 20221112
